FAERS Safety Report 9415003 (Version 2)
Quarter: 2014Q1

REPORT INFORMATION
  Report Type: Spontaneous
  Country: US (occurrence: US)
  Receive Date: 20130723
  Receipt Date: 20140227
  Transmission Date: 20141002
  Serious: Yes (Hospitalization)
  Sender: FDA-Public Use
  Company Number: US-B.I. PHARMACEUTICALS,INC./RIDGEFIELD-2013-BI-21317BP

PATIENT
  Age: 76 Year
  Sex: Female
  Weight: 108 kg

DRUGS (9)
  1. PRADAXA [Suspect]
     Indication: ATRIAL FIBRILLATION
     Route: 048
     Dates: start: 20120501, end: 201210
  2. ASPIRIN EC [Concomitant]
     Dosage: 325 MG
     Route: 065
  3. DOCUSATE SODIUM [Concomitant]
     Dosage: 200 MG
     Route: 065
  4. LISINOPRIL [Concomitant]
     Dosage: 10 MG
     Route: 065
  5. MULTAQ [Concomitant]
     Dosage: 800 MG
     Route: 065
  6. MULTIVITAMIN [Concomitant]
     Route: 065
  7. OYSTER SHELL [Concomitant]
     Dosage: 1500 MG
     Route: 065
  8. CLOBETASOL [Concomitant]
     Route: 065
  9. VENTOLIN INHALER [Concomitant]
     Dosage: 4 PUF
     Route: 065

REACTIONS (5)
  - Gastrointestinal haemorrhage [Unknown]
  - Haematuria [Unknown]
  - Microcytic anaemia [Unknown]
  - Urinary tract infection [Unknown]
  - Postmenopausal haemorrhage [Unknown]
